FAERS Safety Report 22266077 (Version 1)
Quarter: 2023Q2

REPORT INFORMATION
  Report Type: Spontaneous
  Country: US (occurrence: US)
  Receive Date: 20230428
  Receipt Date: 20230428
  Transmission Date: 20230722
  Serious: No
  Sender: FDA-Public Use
  Company Number: US-MYOVANT SCIENCES GMBH-2023MYSCI0200223

PATIENT
  Age: 85 Year
  Sex: Male

DRUGS (7)
  1. ORGOVYX [Suspect]
     Active Substance: RELUGOLIX
     Indication: Prostate cancer
     Dosage: UNK
     Route: 048
     Dates: start: 20220803, end: 20220803
  2. ORGOVYX [Suspect]
     Active Substance: RELUGOLIX
     Dosage: 120 MILLIGRAM, QD
     Route: 048
     Dates: start: 20220804, end: 202301
  3. FLOMAX                             /01280302/ [Concomitant]
     Indication: Prostatomegaly
     Dosage: 0.4 MILLIGRAM, QD
     Route: 048
     Dates: start: 20210907
  4. LIPITOR [Concomitant]
     Active Substance: ATORVASTATIN CALCIUM
     Indication: Cardiac disorder
     Dosage: 80 MILLIGRAM, QD
     Route: 048
     Dates: start: 20210302
  5. ELIQUIS [Concomitant]
     Active Substance: APIXABAN
     Indication: Cardiac disorder
     Dosage: 5 MILLIGRAM, BID
     Route: 048
     Dates: start: 20220429
  6. AMIODARONE [Concomitant]
     Active Substance: AMIODARONE
     Indication: Cardiac disorder
     Dosage: 50 MILLIGRAM, QD
     Route: 048
     Dates: start: 20220419
  7. VITAMIN B12 [Concomitant]
     Active Substance: CYANOCOBALAMIN
     Indication: Supplementation therapy
     Dosage: 50 MICROGRAM, QD
     Route: 048

REACTIONS (1)
  - Therapy interrupted [Unknown]

NARRATIVE: CASE EVENT DATE: 20230101
